FAERS Safety Report 24032287 (Version 1)
Quarter: 2024Q2

REPORT INFORMATION
  Report Type: Spontaneous
  Country: CN (occurrence: CN)
  Receive Date: 20240630
  Receipt Date: 20240630
  Transmission Date: 20240715
  Serious: Yes (Life-Threatening, Hospitalization)
  Sender: FDA-Public Use
  Company Number: CN-BEIGENE-BGN-2024-009968

PATIENT

DRUGS (1)
  1. TISLELIZUMAB [Suspect]
     Active Substance: TISLELIZUMAB
     Indication: Neoplasm
     Dosage: 200 MILLIGRAM
     Route: 041
     Dates: start: 20240522

REACTIONS (2)
  - Pneumonia [Recovering/Resolving]
  - Respiratory failure [Unknown]

NARRATIVE: CASE EVENT DATE: 20240603
